FAERS Safety Report 19562218 (Version 2)
Quarter: 2021Q3

REPORT INFORMATION
  Report Type: Spontaneous
  Country: PT (occurrence: PT)
  Receive Date: 20210712
  Receipt Date: 20210714
  Transmission Date: 20211014
  Serious: Yes (Hospitalization, Congenital Anomaly, Other)
  Sender: FDA-Public Use
  Company Number: PT-AMICI-2021AMILIT00005

PATIENT
  Sex: Male
  Weight: 3.2 kg

DRUGS (3)
  1. PARACETAMOL [Suspect]
     Active Substance: ACETAMINOPHEN
     Indication: PRODUCT USED FOR UNKNOWN INDICATION
     Dosage: 5 DAY COURSE
     Route: 064
  2. PROPRANOLOL [Interacting]
     Active Substance: PROPRANOLOL HYDROCHLORIDE
     Indication: VENTRICULAR HYPERTROPHY
     Route: 065
  3. DICLOFENAC POTASSIUM. [Suspect]
     Active Substance: DICLOFENAC POTASSIUM
     Indication: PRODUCT USED FOR UNKNOWN INDICATION
     Dosage: SINGLE DOSE
     Route: 064

REACTIONS (10)
  - Pulmonary valve thickening [Recovered/Resolved]
  - Right-to-left cardiac shunt [Recovered/Resolved]
  - Atrial septal defect [Recovered/Resolved]
  - Foetal exposure during pregnancy [Unknown]
  - Ventricular hypertrophy [Recovered/Resolved]
  - Tricuspid valve incompetence [Recovered/Resolved]
  - Ductus arteriosus premature closure [Recovered/Resolved]
  - Cyanosis central [Recovered/Resolved]
  - Pulmonary hypertension [Recovered/Resolved]
  - Hypoxia [Recovered/Resolved]
